FAERS Safety Report 8569390 (Version 4)
Quarter: 2025Q3

REPORT INFORMATION
  Report Type: Spontaneous
  Country: EU (occurrence: UA)
  Receive Date: 20120518
  Receipt Date: 20250903
  Transmission Date: 20251021
  Serious: Yes (Life-Threatening, Hospitalization, Other)
  Sender: MERCK SHARP & DOHME LLC
  Company Number: None

PATIENT
  Age: 61 Year
  Sex: Female

DRUGS (7)
  1. IMIPENEM AND CILASTATIN [Suspect]
     Active Substance: CILASTATIN SODIUM\IMIPENEM
     Indication: Prophylaxis
     Route: 042
     Dates: start: 20120202, end: 20120223
  2. ZOVIRAX [Suspect]
     Active Substance: ACYCLOVIR
     Indication: Oral herpes
     Route: 042
     Dates: start: 20120220, end: 20120220
  3. VANCOMYCIN [Suspect]
     Active Substance: VANCOMYCIN
     Indication: Prophylaxis
     Route: 042
     Dates: start: 20120202, end: 20120223
  4. CIPROFLOXACIN HYDROCHLORIDE [Suspect]
     Active Substance: CIPROFLOXACIN HYDROCHLORIDE
     Indication: Prophylaxis
     Route: 042
     Dates: start: 20120202, end: 20120223
  5. MYLOTARG [Concomitant]
     Active Substance: GEMTUZUMAB OZOGAMICIN
     Indication: Acute myeloid leukaemia
     Dosage: DOSE DESCRIPTION : 9 MG/M2, QD?DAILY DOSE : 9 MILLIGRAM/SQ. METER
     Route: 042
     Dates: end: 20120229
  6. CYTARABINE [Concomitant]
     Active Substance: CYTARABINE
     Indication: Acute myeloid leukaemia
     Dosage: DOSE DESCRIPTION : 50 MG, BID?DAILY DOSE : 100 MILLIGRAM
     Route: 058
     Dates: start: 20101026
  7. DAUNORUBICIN HYDROCHLORIDE [Concomitant]
     Active Substance: DAUNORUBICIN HYDROCHLORIDE
     Indication: Acute myeloid leukaemia
     Route: 042
     Dates: start: 20100826, end: 20120229

REACTIONS (1)
  - Acute generalised exanthematous pustulosis [Recovered/Resolved]

NARRATIVE: CASE EVENT DATE: 20120224
